FAERS Safety Report 4738084-3 (Version None)
Quarter: 2005Q3

REPORT INFORMATION
  Report Type: 
  Country: None (occurrence: None)
  Receive Date: 20050809
  Receipt Date: 20050725
  Transmission Date: 20060218
  Serious: Yes (Hospitalization)
  Sender: FDA-Public Use
  Company Number: 200512371EU

PATIENT
  Age: 68 Year
  Sex: Female

DRUGS (4)
  1. PERINDOPRIL [Suspect]
     Indication: HYPERTENSION
     Dosage: DOSE: UNK
  2. FUROSEMIDE AMILORIDE [Concomitant]
     Dosage: DOSE: UNK
     Route: 055
  3. FLUTICASONE PROPIONATE [Concomitant]
     Dosage: DOSE: UNK
  4. ALBUTEROL SULFATE HFA [Concomitant]
     Dosage: DOSE: UNK

REACTIONS (10)
  - BLOOD SODIUM DECREASED [None]
  - EOSINOPHIL COUNT INCREASED [None]
  - HYPOTENSION [None]
  - LABORATORY TEST ABNORMAL [None]
  - LYMPHADENOPATHY MEDIASTINAL [None]
  - MALAISE [None]
  - NAUSEA [None]
  - PULMONARY EOSINOPHILIA [None]
  - PYREXIA [None]
  - SINUSITIS [None]
